FAERS Safety Report 9924164 (Version 2)
Quarter: 2014Q2

REPORT INFORMATION
  Report Type: Spontaneous
  Country: US (occurrence: US)
  Receive Date: 20140226
  Receipt Date: 20140403
  Transmission Date: 20141212
  Serious: No
  Sender: FDA-Public Use
  Company Number: US-BIOGENIDEC-2014BI017064

PATIENT
  Sex: Female

DRUGS (8)
  1. TYSABRI [Suspect]
     Indication: MULTIPLE SCLEROSIS
     Route: 042
     Dates: start: 20130506, end: 20140212
  2. GABAPENTIN [Concomitant]
     Route: 048
     Dates: start: 20130318
  3. CYMBALTA [Concomitant]
     Route: 048
     Dates: start: 20130920
  4. VALTREX [Concomitant]
     Route: 048
     Dates: start: 20130619
  5. LIDODERM [Concomitant]
     Dates: start: 20130806
  6. MODAFINIL [Concomitant]
     Route: 048
     Dates: start: 20131023
  7. ZYRTEC [Concomitant]
     Route: 048
  8. PROVIGIL [Concomitant]

REACTIONS (15)
  - Anxiety [Unknown]
  - Depression [Unknown]
  - Hypoaesthesia [Unknown]
  - Paraesthesia [Unknown]
  - Neurological symptom [Unknown]
  - Amnesia [Unknown]
  - Stress [Unknown]
  - Pain in extremity [Unknown]
  - Muscle spasms [Unknown]
  - Muscular weakness [Unknown]
  - Fatigue [Unknown]
  - Drug effect decreased [Unknown]
  - Headache [Unknown]
  - Tearfulness [Unknown]
  - Multiple sclerosis [Unknown]
